FAERS Safety Report 11501319 (Version 1)
Quarter: 2015Q3

REPORT INFORMATION
  Report Type: Spontaneous
  Country: BR (occurrence: BR)
  Receive Date: 20150914
  Receipt Date: 20150914
  Transmission Date: 20151125
  Serious: Yes (Other)
  Sender: FDA-Public Use
  Company Number: BR-JNJFOC-20150908015

PATIENT
  Age: 87 Year
  Sex: Female

DRUGS (3)
  1. XARELTO [Suspect]
     Active Substance: RIVAROXABAN
     Indication: CEREBROVASCULAR ACCIDENT PROPHYLAXIS
     Route: 048
     Dates: end: 20150902
  2. XARELTO [Suspect]
     Active Substance: RIVAROXABAN
     Indication: CORONARY REVASCULARISATION
     Route: 048
     Dates: end: 20150902
  3. XARELTO [Suspect]
     Active Substance: RIVAROXABAN
     Indication: ATRIAL FIBRILLATION
     Route: 048
     Dates: end: 20150902

REACTIONS (9)
  - Fall [Unknown]
  - Brain injury [Unknown]
  - Subarachnoid haemorrhage [Unknown]
  - Haematoma [Unknown]
  - Cerebral ventricle collapse [Unknown]
  - Hypertension [Unknown]
  - Circumoral oedema [Unknown]
  - Head injury [Unknown]
  - Cerebral amyloid angiopathy [Unknown]

NARRATIVE: CASE EVENT DATE: 20150828
